FAERS Safety Report 16284516 (Version 1)
Quarter: 2019Q2

REPORT INFORMATION
  Report Type: Spontaneous
  Country: US (occurrence: US)
  Receive Date: 20190508
  Receipt Date: 20190508
  Transmission Date: 20190711
  Serious: No
  Sender: FDA-Public Use
  Company Number: US-TEVA-2019-US-1046230

PATIENT
  Sex: Female

DRUGS (1)
  1. TRINESSA [Suspect]
     Active Substance: ETHINYL ESTRADIOL\NORGESTIMATE
     Route: 065

REACTIONS (6)
  - Depression [Unknown]
  - Alopecia [Unknown]
  - Lethargy [Unknown]
  - Dyspepsia [Unknown]
  - Drug ineffective [Unknown]
  - Feeling abnormal [Unknown]
